FAERS Safety Report 7213123-9 (Version None)
Quarter: 2011Q1

REPORT INFORMATION
  Report Type: 
  Country: None (occurrence: None)
  Receive Date: 20110106
  Receipt Date: 20110104
  Transmission Date: 20110831
  Serious: Yes (Hospitalization, Other)
  Sender: FDA-Public Use
  Company Number: DE-AMGEN-DEUSP2011000049

PATIENT

DRUGS (1)
  1. PROLIA [Suspect]
     Indication: OSTEOPOROSIS POSTMENOPAUSAL
     Dosage: UNK
     Dates: start: 20101220

REACTIONS (4)
  - BLOOD PARATHYROID HORMONE INCREASED [None]
  - BLOOD CALCIUM INCREASED [None]
  - FALL [None]
  - HYPERPARATHYROIDISM PRIMARY [None]
